FAERS Safety Report 8800907 (Version 1)
Quarter: 2012Q4

REPORT INFORMATION
  Report Type: 
  Country: JP (occurrence: JP)
  Receive Date: 20120921
  Receipt Date: 20120921
  Transmission Date: 20130627
  Serious: Yes (Hospitalization, Disabling)
  Sender: FDA-Public Use
  Company Number: JP-PFIZER INC-2012197949

PATIENT
  Age: 76 Year
  Sex: Female

DRUGS (3)
  1. ZYVOX [Suspect]
     Indication: ARTHRITIS BACTERIAL
     Dosage: 600 mg, 2x/day
     Route: 048
     Dates: start: 20120806, end: 20120812
  2. MINOMYCIN [Suspect]
     Indication: ARTHRITIS BACTERIAL
     Dosage: 100 mg, 2x/day
     Route: 048
     Dates: start: 20120806, end: 20120812
  3. RIFADINE [Suspect]
     Indication: ARTHRITIS BACTERIAL
     Dosage: UNK
     Route: 048
     Dates: start: 20120806

REACTIONS (4)
  - Nausea [Unknown]
  - Vomiting [Unknown]
  - Liver function test abnormal [Unknown]
  - C-reactive protein increased [Unknown]
